FAERS Safety Report 9680784 (Version 2)
Quarter: 2013Q4

REPORT INFORMATION
  Report Type: Report from Study
  Country: US (occurrence: US)
  Receive Date: 20131111
  Receipt Date: 20131111
  Transmission Date: 20140711
  Serious: Yes (Life-Threatening, Hospitalization)
  Sender: FDA-Public Use
  Company Number: PHEH2013US011842

PATIENT
  Age: 76 Year
  Sex: Male

DRUGS (16)
  1. EXELON PATCH [Suspect]
     Indication: DEMENTIA ALZHEIMER^S TYPE
     Dosage: 9.5 MG, DAILY
     Route: 062
     Dates: start: 20130104
  2. EXELON PATCH [Suspect]
     Dosage: 4.6 MG, DAILY
     Route: 062
     Dates: start: 20130415
  3. EXELON PATCH [Suspect]
     Dosage: 9.5 MG, DAILY
     Route: 062
  4. ALIGN [Concomitant]
     Dosage: 1 DF (4 MG), DAILY
  5. ASPIRIN [Concomitant]
     Dosage: UNK UKN, UNK
  6. DIAZEPAM [Concomitant]
     Dosage: 30 MG, UNK
  7. ENALAPRIL MALEATE [Concomitant]
     Indication: HYPERTENSION
     Dosage: 1 DF, DAILY
     Route: 048
  8. GABAPENTIN [Concomitant]
     Dosage: 2 DF, DAILY
  9. KONSUL [Concomitant]
     Dosage: 2 DF (1 TO 2 TSP), DAILY
  10. LUPRON DEPOT [Concomitant]
     Dosage: UNK UKN, UNK
     Route: 030
  11. PRILOSEC [Concomitant]
     Indication: GASTROOESOPHAGEAL REFLUX DISEASE
     Dosage: 1 DF, DAILY
     Route: 048
  12. PRILOSEC [Concomitant]
     Dosage: UNK UKN, UNK
     Route: 048
  13. PRILOSEC [Concomitant]
     Dosage: 20 MG, QD
     Route: 048
  14. TEMAZEPAM [Concomitant]
     Dosage: 15 MG, (2 AT BEDTIME)
  15. VIT D [Concomitant]
     Dosage: 1 DF, DAILY
  16. ESCITALOPRAM [Concomitant]
     Indication: DEPRESSION
     Dosage: 1 DF, UNK
     Route: 048

REACTIONS (8)
  - Cervical vertebral fracture [Unknown]
  - Fall [Unknown]
  - Application site rash [Unknown]
  - Application site pruritus [Unknown]
  - Decreased appetite [Unknown]
  - Application site swelling [Unknown]
  - Application site bruise [Unknown]
  - Application site erythema [Unknown]
